FAERS Safety Report 16290204 (Version 1)
Quarter: 2019Q2

REPORT INFORMATION
  Report Type: Spontaneous
  Country: GB (occurrence: GB)
  Receive Date: 20190509
  Receipt Date: 20190509
  Transmission Date: 20190711
  Serious: Yes (Other)
  Sender: FDA-Public Use
  Company Number: GB-ROCHE-2315215

PATIENT
  Age: 84 Year
  Sex: Male

DRUGS (2)
  1. VALIUM [Suspect]
     Active Substance: DIAZEPAM
     Indication: MUSCLE CONTRACTURE
     Dosage: FOR A WEEK
     Route: 042
  2. VALIUM [Suspect]
     Active Substance: DIAZEPAM
     Route: 048

REACTIONS (1)
  - Hypothermia [Not Recovered/Not Resolved]
